FAERS Safety Report 16681064 (Version 3)
Quarter: 2019Q3

REPORT INFORMATION
  Report Type: Spontaneous
  Country: FR (occurrence: FR)
  Receive Date: 20190808
  Receipt Date: 20190916
  Transmission Date: 20191004
  Serious: Yes (Hospitalization, Other)
  Sender: FDA-Public Use
  Company Number: FR-SUN PHARMACEUTICAL INDUSTRIES LTD-2019RR-216852

PATIENT
  Age: 60 Year
  Sex: Female

DRUGS (3)
  1. FLUCONAZOLE. [Interacting]
     Active Substance: FLUCONAZOLE
     Indication: MENINGITIS
     Dosage: 800 MILLIGRAM, DAILY
     Route: 042
     Dates: start: 20181116
  2. FLUCYTOSINE. [Concomitant]
     Active Substance: FLUCYTOSINE
     Indication: MENINGITIS
     Dosage: 2 GRAM, DAILY
     Route: 042
     Dates: start: 20181109
  3. TRAMADOL. [Suspect]
     Active Substance: TRAMADOL
     Indication: HEADACHE
     Dosage: 100 MILLIGRAM, DAILY
     Route: 048
     Dates: start: 20181103, end: 20181119

REACTIONS (5)
  - Confusional state [Recovered/Resolved]
  - Delirium [Recovered/Resolved]
  - Drug interaction [Unknown]
  - Hallucination, auditory [Recovered/Resolved]
  - Hallucination, visual [Recovered/Resolved]

NARRATIVE: CASE EVENT DATE: 20181120
